FAERS Safety Report 6084745-6 (Version None)
Quarter: 2009Q1

REPORT INFORMATION
  Report Type: 
  Country: None (occurrence: None)
  Receive Date: 20090217
  Receipt Date: 20090204
  Transmission Date: 20090719
  Serious: Yes (Hospitalization)
  Sender: FDA-Public Use
  Company Number: DSA_33195_2009

PATIENT
  Sex: Male

DRUGS (3)
  1. TETRABENAZINE (TETRABENAZINE) 150 MG [Suspect]
     Indication: DYSKINESIA
     Dosage: 25 MG 6X/DAY; ORAL
     Route: 048
     Dates: end: 20090205
  2. LEVODOPA [Concomitant]
  3. SEROQUEL [Concomitant]

REACTIONS (4)
  - AGITATION [None]
  - AKATHISIA [None]
  - APHASIA [None]
  - MEMORY IMPAIRMENT [None]
